FAERS Safety Report 5057193-5 (Version None)
Quarter: 2006Q3

REPORT INFORMATION
  Report Type: 
  Country: None (occurrence: None)
  Receive Date: 20060721
  Receipt Date: 20050602
  Transmission Date: 20061208
  Serious: No
  Sender: FDA-Public Use
  Company Number: US-GLAXOSMITHKLINE-A0560964A

PATIENT
  Age: 66 Year
  Sex: Female

DRUGS (2)
  1. AVANDIA [Suspect]
     Dosage: 4MG TWICE PER DAY
     Route: 048
  2. GLIPIZIDE [Concomitant]

REACTIONS (2)
  - SWELLING [None]
  - WEIGHT INCREASED [None]
